FAERS Safety Report 19406006 (Version 1)
Quarter: 2021Q2

REPORT INFORMATION
  Report Type: Spontaneous
  Country: IN (occurrence: IN)
  Receive Date: 20210611
  Receipt Date: 20210611
  Transmission Date: 20210717
  Serious: Yes (Other)
  Sender: FDA-Public Use
  Company Number: IN-MYLANLABS-2021M1034257

PATIENT
  Age: 6 Year
  Sex: Male

DRUGS (7)
  1. CARBOPLATIN. [Suspect]
     Active Substance: CARBOPLATIN
     Indication: ATYPICAL TERATOID/RHABDOID TUMOUR OF CNS
     Dosage: 500 MILLIGRAM/SQ. METER, CYCLE, D3; REPEATED EVERY 3 WEEKS; ICE REGIMEN
     Route: 042
  2. IFOSFAMIDE. [Suspect]
     Active Substance: IFOSFAMIDE
     Indication: ATYPICAL TERATOID/RHABDOID TUMOUR OF CNS
     Dosage: UNK, CYCLE2 G/M2; D1?D3; REPEATED EVERY 3 WEEKS; ICE REGIMEN
     Route: 042
  3. MESNA. [Concomitant]
     Active Substance: MESNA
     Indication: PROPHYLAXIS
     Dosage: UNK
     Route: 065
  4. IFOSFAMIDE. [Suspect]
     Active Substance: IFOSFAMIDE
     Dosage: UNK, CYCLERECEIVED 3 MORE CYCLES OF CHEMOTHERAPY WITH ICE REGIMEN
     Route: 042
  5. ETOPOSIDE. [Suspect]
     Active Substance: ETOPOSIDE
     Indication: ATYPICAL TERATOID/RHABDOID TUMOUR OF CNS
     Dosage: D1?D3; REPEATED EVERY 3 WEEKS; ICE REGIMEN
     Route: 042
  6. CARBOPLATIN. [Suspect]
     Active Substance: CARBOPLATIN
     Dosage: RECEIVED 3 MORE CYCLES OF CHEMOTHERAPY WITH ICE REGIMEN
     Route: 042
  7. ETOPOSIDE. [Suspect]
     Active Substance: ETOPOSIDE
     Dosage: UNK UNK, CYCLERECEIVED 3 MORE CYCLES OF CHEMOTHERAPY WITH ICE REGIMEN
     Route: 042

REACTIONS (6)
  - Off label use [Unknown]
  - Thrombocytopenia [Unknown]
  - Leukopenia [Unknown]
  - Neutropenia [Unknown]
  - Varicella zoster virus infection [Unknown]
  - Anaemia [Unknown]
